FAERS Safety Report 23124994 (Version 1)
Quarter: 2023Q4

REPORT INFORMATION
  Report Type: Spontaneous
  Country: JP (occurrence: JP)
  Receive Date: 20231030
  Receipt Date: 20231030
  Transmission Date: 20240110
  Serious: Yes (Other)
  Sender: FDA-Public Use
  Company Number: JP-BRISTOL-MYERS SQUIBB COMPANY-2023-153909

PATIENT
  Age: 76 Year
  Sex: Female
  Weight: 63.2 kg

DRUGS (14)
  1. REVLIMID [Suspect]
     Active Substance: LENALIDOMIDE
     Indication: Marginal zone lymphoma
     Dates: start: 20230405, end: 20230425
  2. REVLIMID [Suspect]
     Active Substance: LENALIDOMIDE
     Dates: start: 20230511, end: 20230522
  3. REVLIMID [Suspect]
     Active Substance: LENALIDOMIDE
     Dates: start: 20230608, end: 20230628
  4. REVLIMID [Suspect]
     Active Substance: LENALIDOMIDE
     Dates: start: 20230803, end: 20230823
  5. REVLIMID [Suspect]
     Active Substance: LENALIDOMIDE
     Dates: start: 20230831, end: 20230920
  6. RITUXIMAB [Suspect]
     Active Substance: RITUXIMAB
     Indication: Marginal zone lymphoma
     Dates: start: 20230405, end: 20230405
  7. RITUXIMAB [Suspect]
     Active Substance: RITUXIMAB
     Dates: start: 20230412, end: 20230412
  8. RITUXIMAB [Suspect]
     Active Substance: RITUXIMAB
     Dates: start: 20230419, end: 20230419
  9. RITUXIMAB [Suspect]
     Active Substance: RITUXIMAB
     Dates: start: 20230427, end: 20230427
  10. RITUXIMAB [Suspect]
     Active Substance: RITUXIMAB
     Dates: start: 20230511, end: 20230511
  11. RITUXIMAB [Suspect]
     Active Substance: RITUXIMAB
     Dates: start: 20230608, end: 20230608
  12. RITUXIMAB [Suspect]
     Active Substance: RITUXIMAB
     Dates: start: 20230803, end: 20230803
  13. RITUXIMAB [Suspect]
     Active Substance: RITUXIMAB
     Dates: start: 20230831, end: 20230831
  14. SULFAMETHOXAZOLE\TRIMETHOPRIM [Concomitant]
     Active Substance: SULFAMETHOXAZOLE\TRIMETHOPRIM
     Indication: Prophylaxis
     Route: 048
     Dates: start: 20230408

REACTIONS (3)
  - Hydronephrosis [Unknown]
  - Bronchitis [Unknown]
  - Ureterolithiasis [Unknown]
